FAERS Safety Report 7503770-9 (Version None)
Quarter: 2011Q2

REPORT INFORMATION
  Report Type: 
  Country: None (occurrence: None)
  Receive Date: 20110525
  Receipt Date: 20110511
  Transmission Date: 20111010
  Serious: Yes (Hospitalization)
  Sender: FDA-Public Use
  Company Number: PT-JNJFOC-20090902592

PATIENT
  Age: 12 Year
  Sex: Male

DRUGS (4)
  1. REMICADE [Suspect]
     Route: 042
     Dates: start: 20091104
  2. REMICADE [Suspect]
     Indication: CROHN'S DISEASE
     Route: 042
     Dates: start: 20100312
  3. AZATHIOPRINE [Concomitant]
     Dates: end: 20090901
  4. REMICADE [Suspect]
     Dosage: INITIATED 6 WEEKS AGO (REPORTED ON 04-SEP-2009)
     Route: 042
     Dates: start: 20090701, end: 20090807

REACTIONS (4)
  - SKIN LESION [None]
  - INTESTINAL FISTULA [None]
  - MENINGITIS HERPES [None]
  - DRUG INEFFECTIVE [None]
